FAERS Safety Report 14221503 (Version 4)
Quarter: 2018Q1

REPORT INFORMATION
  Report Type: Spontaneous
  Country: IT (occurrence: IT)
  Receive Date: 20171124
  Receipt Date: 20180129
  Transmission Date: 20180508
  Serious: Yes (Other)
  Sender: FDA-Public Use
  Company Number: IT-JNJFOC-20171124738

PATIENT
  Age: 77 Year
  Sex: Male
  Weight: 74 kg

DRUGS (12)
  1. IBRUTINIB [Suspect]
     Active Substance: IBRUTINIB
     Indication: CHRONIC LYMPHOCYTIC LEUKAEMIA
     Route: 048
     Dates: start: 20170704, end: 20171103
  2. DELTACORTENE [Concomitant]
     Active Substance: PREDNISONE
     Dosage: 25 MG / 1/4 TABLETS/DAY??25 MG / 1/2 TABLET/DAY
     Route: 065
  3. BIFRIZIDE [Concomitant]
     Active Substance: HYDROCHLOROTHIAZIDE
     Indication: HYPERTENSION
     Route: 065
  4. IBRUTINIB [Suspect]
     Active Substance: IBRUTINIB
     Indication: CHRONIC LYMPHOCYTIC LEUKAEMIA
     Route: 048
     Dates: start: 20170119
  5. DILTIAZEM. [Concomitant]
     Active Substance: DILTIAZEM
     Indication: HYPERTENSION
     Route: 065
  6. PRADAXA [Suspect]
     Active Substance: DABIGATRAN ETEXILATE MESYLATE
     Indication: PRODUCT USED FOR UNKNOWN INDICATION
     Route: 065
     Dates: start: 20170630
  7. SIDERAL FORTE [Concomitant]
     Active Substance: ASCORBIC ACID\FERRIC PYROPHOSPHATE
     Route: 065
  8. DOBETIN [Concomitant]
     Active Substance: CYANOCOBALAMIN
     Dosage: 1 VIAL/WEEK
     Route: 065
  9. FOLIC ACID. [Concomitant]
     Active Substance: FOLIC ACID
     Route: 065
  10. FUROSEMIDE. [Concomitant]
     Active Substance: FUROSEMIDE
     Dosage: 25 1 C/DAY
     Route: 065
  11. BACTRIM [Concomitant]
     Active Substance: SULFAMETHOXAZOLE\TRIMETHOPRIM
     Dosage: SATURDAY AND SUNDAY
     Route: 065
  12. LANOXIN [Concomitant]
     Active Substance: DIGOXIN
     Route: 065

REACTIONS (7)
  - Anaemia [Recovering/Resolving]
  - Atrial flutter [Unknown]
  - Atrioventricular block [Unknown]
  - Occult blood [Unknown]
  - Coombs negative haemolytic anaemia [Recovering/Resolving]
  - Presyncope [Recovered/Resolved]
  - Gastrointestinal haemorrhage [Not Recovered/Not Resolved]

NARRATIVE: CASE EVENT DATE: 20170321
